FAERS Safety Report 6705851-6 (Version None)
Quarter: 2010Q2

REPORT INFORMATION
  Report Type: 
  Country: None (occurrence: None)
  Receive Date: 20100503
  Receipt Date: 20100430
  Transmission Date: 20101027
  Serious: Yes (Death, Other)
  Sender: FDA-Public Use
  Company Number: US-ASTRAZENECA-2006UW26105

PATIENT
  Age: 532 Month
  Sex: Male
  Weight: 81.6 kg

DRUGS (26)
  1. SEROQUEL [Suspect]
     Indication: SCHIZOPHRENIA
     Route: 048
     Dates: start: 19990101, end: 20061101
  2. SEROQUEL [Suspect]
     Indication: BIPOLAR DISORDER
     Route: 048
     Dates: start: 19990101, end: 20061101
  3. SEROQUEL [Suspect]
     Indication: DEPRESSION
     Route: 048
     Dates: start: 19990101, end: 20061101
  4. SEROQUEL [Suspect]
     Route: 048
     Dates: start: 20020101, end: 20040101
  5. SEROQUEL [Suspect]
     Route: 048
     Dates: start: 20020101, end: 20040101
  6. SEROQUEL [Suspect]
     Route: 048
     Dates: start: 20020101, end: 20040101
  7. SEROQUEL [Suspect]
     Route: 048
     Dates: start: 20051026, end: 20051228
  8. SEROQUEL [Suspect]
     Route: 048
     Dates: start: 20051026, end: 20051228
  9. SEROQUEL [Suspect]
     Route: 048
     Dates: start: 20051026, end: 20051228
  10. SEROQUEL [Suspect]
     Route: 048
     Dates: start: 20070929, end: 20071006
  11. SEROQUEL [Suspect]
     Route: 048
     Dates: start: 20070929, end: 20071006
  12. SEROQUEL [Suspect]
     Route: 048
     Dates: start: 20070929, end: 20071006
  13. SEROQUEL [Suspect]
     Route: 048
     Dates: start: 20060925, end: 20070405
  14. SEROQUEL [Suspect]
     Route: 048
     Dates: start: 20060925, end: 20070405
  15. SEROQUEL [Suspect]
     Route: 048
     Dates: start: 20060925, end: 20070405
  16. SEROQUEL [Suspect]
     Route: 048
     Dates: start: 20070301
  17. SEROQUEL [Suspect]
     Route: 048
     Dates: start: 20070301
  18. SEROQUEL [Suspect]
     Route: 048
     Dates: start: 20070301
  19. ZYPREXA [Concomitant]
  20. HYDROCODONE BITARTRATE AND ACETAMINOPHEN [Concomitant]
     Dosage: STRENGTH - 5 - 500
     Route: 048
     Dates: start: 20050504
  21. LISINOPRIL [Concomitant]
     Route: 048
     Dates: start: 20050520
  22. PROPOXYPHENE NAPSYLATE AND ACETAMINOPHEN [Concomitant]
     Dosage: STRENGTH - 100 - 650
     Route: 048
     Dates: start: 20050623
  23. HYDROCHLOROTHIAZIDE [Concomitant]
     Route: 048
     Dates: start: 20050926
  24. METFORMIN HCL [Concomitant]
     Route: 048
     Dates: start: 20050927
  25. ACETAMINOPHEN/COD [Concomitant]
     Dates: start: 20051209
  26. LANTUS [Concomitant]
     Dosage: STRENGTH - 100 UNITS/ML
     Dates: start: 20051217

REACTIONS (7)
  - DEATH [None]
  - HYPERGLYCAEMIA [None]
  - HYPERTENSION [None]
  - PANCREATITIS [None]
  - PANCREATITIS ACUTE [None]
  - RENAL DISORDER [None]
  - TYPE 2 DIABETES MELLITUS [None]
